FAERS Safety Report 8482486-9 (Version None)
Quarter: 2012Q3

REPORT INFORMATION
  Report Type: 
  Country: None (occurrence: None)
  Receive Date: 20120702
  Receipt Date: 20120625
  Transmission Date: 20120928
  Serious: Yes (Other)
  Sender: FDA-Public Use
  Company Number: CHPA2012US013136

PATIENT
  Age: 90 Year
  Sex: Female

DRUGS (3)
  1. BENICAR [Concomitant]
     Indication: BLOOD PRESSURE
     Route: 048
  2. TOPROL-XL [Concomitant]
     Indication: BLOOD PRESSURE
     Route: 048
  3. VOLTAREN [Suspect]
     Indication: ARTHRALGIA
     Dosage: 2 GRAMS, ONCE OR TWICE A DAY
     Route: 061
     Dates: start: 20110901

REACTIONS (14)
  - HEAD INJURY [None]
  - FALL [None]
  - ABDOMINAL DISTENSION [None]
  - CONSTIPATION [None]
  - SWOLLEN TONGUE [None]
  - DRUG ADMINISTERED AT INAPPROPRIATE SITE [None]
  - CENTRAL NERVOUS SYSTEM LESION [None]
  - DIZZINESS [None]
  - DIARRHOEA [None]
  - ASTHENIA [None]
  - FEELING ABNORMAL [None]
  - WOUND [None]
  - THROAT TIGHTNESS [None]
  - PRURITUS [None]
